FAERS Safety Report 10678448 (Version 1)
Quarter: 2014Q4

REPORT INFORMATION
  Report Type: Other
  Country: IT (occurrence: IT)
  Receive Date: 20141229
  Receipt Date: 20141229
  Transmission Date: 20150529
  Serious: Yes (Life-Threatening, Hospitalization, Other)
  Sender: FDA-Public Use
  Company Number: IT-APOTEX-2014AP006301

PATIENT
  Age: 21 Year
  Sex: Male

DRUGS (3)
  1. PARACETAMOL [Suspect]
     Active Substance: ACETAMINOPHEN
     Indication: PRODUCT USED FOR UNKNOWN INDICATION
     Dosage: 5 G, TOTAL
     Route: 048
     Dates: start: 20141124, end: 20141124
  2. QUETIAPINE [Suspect]
     Active Substance: QUETIAPINE
     Indication: PRODUCT USED FOR UNKNOWN INDICATION
     Dosage: 2 G, TOTAL
     Route: 048
     Dates: start: 20141124, end: 20141124
  3. MIRTAZAPINE. [Suspect]
     Active Substance: MIRTAZAPINE
     Indication: PRODUCT USED FOR UNKNOWN INDICATION
     Dosage: 1500 MG, TOTAL
     Route: 048
     Dates: start: 20141124, end: 20141124

REACTIONS (9)
  - Suicide attempt [Recovering/Resolving]
  - Trismus [Unknown]
  - Confusional state [Recovering/Resolving]
  - Respiratory arrest [Recovering/Resolving]
  - Tachycardia [Recovering/Resolving]
  - Overdose [Recovering/Resolving]
  - Epilepsy [Recovering/Resolving]
  - Toxicity to various agents [Recovering/Resolving]
  - Sopor [Recovering/Resolving]

NARRATIVE: CASE EVENT DATE: 20141125
